FAERS Safety Report 22182804 (Version 1)
Quarter: 2023Q2

REPORT INFORMATION
  Report Type: Spontaneous
  Country: US (occurrence: None)
  Receive Date: 20230406
  Receipt Date: 20230406
  Transmission Date: 20230721
  Serious: No
  Sender: FDA-Public Use
  Company Number: None

PATIENT
  Age: 46 Year
  Sex: Female
  Weight: 81.47 kg

DRUGS (2)
  1. PAXLOVID [Suspect]
     Active Substance: NIRMATRELVIR\RITONAVIR
  2. PAXLOVID [Suspect]
     Active Substance: NIRMATRELVIR\RITONAVIR

REACTIONS (8)
  - Product dispensing error [None]
  - Tongue disorder [None]
  - Glossodynia [None]
  - Tongue haemorrhage [None]
  - Therapy cessation [None]
  - Tongue discolouration [None]
  - Glossodynia [None]
  - Glossodynia [None]

NARRATIVE: CASE EVENT DATE: 20230404
